FAERS Safety Report 19750345 (Version 1)
Quarter: 2021Q3

REPORT INFORMATION
  Report Type: Spontaneous
  Country: US (occurrence: US)
  Receive Date: 20210826
  Receipt Date: 20210826
  Transmission Date: 20211014
  Serious: No
  Sender: FDA-Public Use
  Company Number: US-TAKEDA-2021TUS052483

PATIENT
  Weight: 84 kg

DRUGS (4)
  1. CUVITRU [Suspect]
     Active Substance: HUMAN IMMUNOGLOBULIN G
     Indication: PRIMARY IMMUNODEFICIENCY SYNDROME
     Dosage: 40 MILLIGRAM, Q2WEEKS
     Route: 058
  2. ACETAMINOPHEN. [Concomitant]
     Active Substance: ACETAMINOPHEN
     Indication: PREMEDICATION
     Dosage: 1000 MILIGRAM
     Route: 065
  3. PRENISONE [Concomitant]
     Active Substance: PREDNISONE
     Indication: PREMEDICATION
     Dosage: 10 MILIGRAM
     Route: 065
  4. BENADRYL [Concomitant]
     Active Substance: DIPHENHYDRAMINE HYDROCHLORIDE
     Indication: PREMEDICATION
     Dosage: 75 MILIGRAM
     Route: 065

REACTIONS (5)
  - Urticaria [Unknown]
  - Pruritus [Unknown]
  - Alopecia [Unknown]
  - Hypersensitivity [Unknown]
  - Injection site pruritus [Unknown]
